FAERS Safety Report 8157855-7 (Version None)
Quarter: 2012Q1

REPORT INFORMATION
  Report Type: 
  Country: None (occurrence: None)
  Receive Date: 20120222
  Receipt Date: 20120213
  Transmission Date: 20120608
  Serious: Yes (Other)
  Sender: FDA-Public Use
  Company Number: US-ASTRAZENECA-2012SE05830

PATIENT
  Age: 59 Year
  Sex: Female
  Weight: 108.9 kg

DRUGS (2)
  1. CRESTOR [Suspect]
     Indication: BLOOD CHOLESTEROL ABNORMAL
     Route: 048
     Dates: start: 20110929
  2. PRILOSEC [Suspect]
     Indication: ABDOMINAL DISCOMFORT
     Route: 048
     Dates: start: 20100101

REACTIONS (8)
  - DYSSTASIA [None]
  - DISCOMFORT [None]
  - BACK PAIN [None]
  - CHEST PAIN [None]
  - NEURALGIA [None]
  - PAIN [None]
  - ABDOMINAL PAIN [None]
  - PAIN IN EXTREMITY [None]
